FAERS Safety Report 7183965-7 (Version None)
Quarter: 2010Q4

REPORT INFORMATION
  Report Type: 
  Country: None (occurrence: None)
  Receive Date: 20101222
  Receipt Date: 20101216
  Transmission Date: 20110411
  Serious: Yes (Life-Threatening, Hospitalization)
  Sender: FDA-Public Use
  Company Number: FR-ROCHE-748820

PATIENT
  Sex: Female
  Weight: 89 kg

DRUGS (8)
  1. RIVOTRIL [Suspect]
     Route: 048
  2. RIVOTRIL [Suspect]
     Route: 048
  3. RIVOTRIL [Suspect]
     Route: 048
  4. RIVOTRIL [Suspect]
     Route: 048
  5. KEPPRA [Suspect]
     Indication: EPILEPSY
     Dosage: 1250 IN MORNING AND IN EVENING
     Route: 048
  6. TEGRETOL [Suspect]
     Indication: EPILEPSY
     Dosage: 400 MG IN MORNING AND 400 EVENING
     Route: 048
  7. LAMICTAL [Suspect]
     Indication: EPILEPSY
     Dosage: 250 MG IN MORNING AND 300 MG IN EVENING
     Route: 048
  8. LAMICTAL [Suspect]
     Dosage: DOSAGE INCREASED
     Route: 048
     Dates: start: 20101003

REACTIONS (3)
  - CONVULSION [None]
  - DECREASED ACTIVITY [None]
  - DRUG CLEARANCE INCREASED [None]
